FAERS Safety Report 11958958 (Version 2)
Quarter: 2016Q1

REPORT INFORMATION
  Report Type: Report from Study
  Country: US (occurrence: US)
  Receive Date: 20160126
  Receipt Date: 20160224
  Transmission Date: 20160526
  Serious: Yes (Other)
  Sender: FDA-Public Use
  Company Number: US-BEH-2016057911

PATIENT
  Age: 66 Year
  Sex: Female
  Weight: 69 kg

DRUGS (1)
  1. ZEMAIRA [Suspect]
     Active Substance: .ALPHA.1-PROTEINASE INHIBITOR HUMAN
     Indication: ALPHA-1 ANTI-TRYPSIN DEFICIENCY
     Route: 042

REACTIONS (2)
  - Pseudomonas infection [Not Recovered/Not Resolved]
  - Mycobacterium avium complex infection [Unknown]

NARRATIVE: CASE EVENT DATE: 20160105
